FAERS Safety Report 8107696-1 (Version None)
Quarter: 2012Q1

REPORT INFORMATION
  Report Type: 
  Country: None (occurrence: None)
  Receive Date: 20120202
  Receipt Date: 20120127
  Transmission Date: 20120608
  Serious: Yes (Hospitalization)
  Sender: FDA-Public Use
  Company Number: TR-ROXANE LABORATORIES, INC.-2012-RO-00564RO

PATIENT
  Age: 64 Year
  Sex: Male

DRUGS (6)
  1. METHYLPREDNISOLONE [Suspect]
     Indication: RHEUMATOID ARTHRITIS
     Dosage: 4 MG
  2. METHOTREXATE [Suspect]
     Indication: RHEUMATOID ARTHRITIS
     Dates: start: 20021001, end: 20030501
  3. FOLIC ACID [Suspect]
     Indication: RHEUMATOID ARTHRITIS
  4. DEFLAZACORT [Suspect]
     Indication: RHEUMATOID ARTHRITIS
     Dosage: 6 MG
     Dates: start: 20021001
  5. METHOTREXATE [Suspect]
     Dates: start: 20030501, end: 20040601
  6. METHOTREXATE [Suspect]
     Dates: start: 20040601, end: 20050601

REACTIONS (2)
  - GASTROINTESTINAL DISORDER [None]
  - RHEUMATOID NODULE [None]
